FAERS Safety Report 16033406 (Version 1)
Quarter: 2019Q1

REPORT INFORMATION
  Report Type: Other
  Country: FR (occurrence: FR)
  Receive Date: 20190305
  Receipt Date: 20190305
  Transmission Date: 20190418
  Serious: Yes (Other)
  Sender: FDA-Public Use
  Company Number: FR-CELLTRION INC.-2019FR018965

PATIENT

DRUGS (9)
  1. CARBOPLATINE [Suspect]
     Active Substance: CARBOPLATIN
     Indication: MANTLE CELL LYMPHOMA STAGE IV
     Dosage: 790 MG, PER 1 CYCLE
     Route: 042
     Dates: start: 20181206, end: 20181206
  2. VALACICLOVIR [Concomitant]
     Active Substance: VALACYCLOVIR HYDROCHLORIDE
  3. HYTACAND [Concomitant]
     Active Substance: CANDESARTAN CILEXETIL\HYDROCHLOROTHIAZIDE
  4. METOCLOPRAMIDE. [Concomitant]
     Active Substance: METOCLOPRAMIDE
  5. TRUXIMA [Suspect]
     Active Substance: RITUXIMAB-ABBS
     Indication: MANTLE CELL LYMPHOMA STAGE IV
     Dosage: 750 MG, PER 1 CYCLE
     Route: 042
     Dates: start: 20181206, end: 20181206
  6. CYTARABINE KABI [Suspect]
     Active Substance: CYTARABINE
     Indication: MANTLE CELL LYMPHOMA STAGE IV
     Dosage: 8000 MG, PER 1 CYCLE
     Route: 042
     Dates: start: 20181206, end: 20181207
  7. XANAX [Concomitant]
     Active Substance: ALPRAZOLAM
  8. IMOVANE [Concomitant]
     Active Substance: ZOPICLONE
  9. ACIDE FOLIQUE [Concomitant]
     Active Substance: FOLIC ACID

REACTIONS (4)
  - Iridocyclitis [Recovered/Resolved]
  - Corneal oedema [Recovered/Resolved]
  - Product use in unapproved indication [Unknown]
  - Visual acuity reduced [Recovered/Resolved]

NARRATIVE: CASE EVENT DATE: 20181206
